FAERS Safety Report 6512153-X (Version None)
Quarter: 2009Q4

REPORT INFORMATION
  Report Type: 
  Country: None (occurrence: None)
  Receive Date: 20091222
  Receipt Date: 20090610
  Transmission Date: 20100525
  Serious: No
  Sender: FDA-Public Use
  Company Number: US-ASTRAZENECA-2009UW14968

PATIENT
  Age: 87 Year
  Sex: Female
  Weight: 58.5 kg

DRUGS (15)
  1. CRESTOR [Suspect]
     Route: 048
     Dates: start: 20090609
  2. PLAVIX [Concomitant]
  3. METAMUCIL [Concomitant]
  4. ISOSORBIDE MONOHYDRATE [Concomitant]
  5. TOPROL-XL [Concomitant]
  6. ASA BABY 81 [Concomitant]
  7. EYE DROPS [Concomitant]
     Indication: GLAUCOMA
  8. LEVOTHYROXINE SODIUM [Concomitant]
     Indication: THYROID DISORDER
  9. DILTIAZEM [Concomitant]
  10. ESTER C [Concomitant]
  11. VITAMIN B COMPLEX CAP [Concomitant]
  12. FOLIC ACID [Concomitant]
  13. MULTI-VITAMINS [Concomitant]
  14. CRANBERRY CAPSULES [Concomitant]
  15. MIRALAX [Concomitant]

REACTIONS (2)
  - EAR PAIN [None]
  - HEADACHE [None]
